FAERS Safety Report 5722235-8 (Version None)
Quarter: 2008Q2

REPORT INFORMATION
  Report Type: 
  Country: None (occurrence: None)
  Receive Date: 20080425
  Receipt Date: 20080414
  Transmission Date: 20081010
  Serious: Yes (Death)
  Sender: FDA-Public Use
  Company Number: S08-USA-00438-01

PATIENT
  Sex: Male
  Weight: 81.6475 kg

DRUGS (7)
  1. CELEXA [Suspect]
     Indication: DEPRESSION
     Dosage: 60 MG QD PO
     Route: 048
     Dates: start: 20041101, end: 20050901
  2. CELEXA [Suspect]
     Indication: DEPRESSION
     Dosage: 20 MG QD PO
     Route: 048
     Dates: start: 20040501, end: 20040101
  3. CELEXA [Suspect]
     Indication: DEPRESSION
     Dosage: 40 MG QD PO
     Route: 048
     Dates: start: 20040101, end: 20041101
  4. ULTRACET [Suspect]
     Indication: BACK PAIN
     Dosage: 1 TABLET QID
     Dates: start: 20041001, end: 20050901
  5. ACIPHEX [Concomitant]
  6. ZYPREXA [Concomitant]
  7. ESKALITH [Concomitant]

REACTIONS (2)
  - DRUG TOXICITY [None]
  - MULTIPLE DRUG OVERDOSE ACCIDENTAL [None]
